FAERS Safety Report 8685606 (Version 2)
Quarter: 2012Q4

REPORT INFORMATION
  Report Type: 
  Country: AU (occurrence: AU)
  Receive Date: 20120726
  Receipt Date: 20120924
  Transmission Date: 20130627
  Serious: Yes (Death)
  Sender: FDA-Public Use
  Company Number: AU-ABBOTT-12P-008-0960162-00

PATIENT
  Age: 71 Year
  Sex: Male

DRUGS (1)
  1. LUCRIN [Suspect]
     Indication: PRODUCT USED FOR UNKNOWN INDICATION
     Dosage: 1 in 4 months, had 2 injections
     Dates: start: 20111116

REACTIONS (2)
  - Myocardial infarction [Fatal]
  - Hot flush [Unknown]
